FAERS Safety Report 4338166-4 (Version None)
Quarter: 2004Q2

REPORT INFORMATION
  Report Type: 
  Country: None (occurrence: None)
  Receive Date: 20040407
  Receipt Date: 20040329
  Transmission Date: 20050107
  Serious: Yes (Other)
  Sender: FDA-Public Use
  Company Number: CH-SHR-04-023226

PATIENT
  Sex: 0

DRUGS (1)
  1. ULTRAVIST 300 [Suspect]
     Indication: COMPUTERISED TOMOGRAM
     Dosage: 4ML TOTAL, I.V. AND TRANSRECTAL, UNK
     Route: 042

REACTIONS (1)
  - HYPOTHYROIDISM [None]
